FAERS Safety Report 8583181-8 (Version None)
Quarter: 2012Q3

REPORT INFORMATION
  Report Type: 
  Country: None (occurrence: None)
  Receive Date: 20120727
  Receipt Date: 20120712
  Transmission Date: 20120928
  Serious: Yes (Hospitalization)
  Sender: FDA-Public Use
  Company Number: TCI2012A02957

PATIENT
  Age: 77 Year
  Sex: Male

DRUGS (3)
  1. CRESTOR [Suspect]
     Indication: LOW DENSITY LIPOPROTEIN INCREASED
     Dosage: 2.5 MG (2.5 MG,1 IN 1 D) PER ORAL
     Route: 048
     Dates: start: 20120517, end: 20120531
  2. LANSOPRAZOLE [Suspect]
     Indication: ULCER
     Dosage: 15 MG (15 MG,1 IN 1 D) PER ORAL
     Route: 048
     Dates: start: 20120517, end: 20120531
  3. PLETAL [Suspect]
     Indication: THROMBOSIS PROPHYLAXIS
     Dosage: 200 MG (100 MG,2 IN 1 D) PER ORAL
     Route: 048
     Dates: start: 20120529, end: 20120531

REACTIONS (1)
  - LEUKOCYTOCLASTIC VASCULITIS [None]
